FAERS Safety Report 9122601 (Version 1)
Quarter: 2013Q1

REPORT INFORMATION
  Report Type: Spontaneous
  Country: US (occurrence: None)
  Receive Date: 20130225
  Receipt Date: 20130225
  Transmission Date: 20140127
  Serious: Yes (Other)
  Sender: FDA-Public Use
  Company Number: FK201300551

PATIENT
  Age: 75 Year
  Sex: Female

DRUGS (4)
  1. PROTAMINE SULFATE [Suspect]
     Indication: PRODUCT USED FOR UNKNOWN INDICATION
     Route: 042
  2. CLOPIDOGREL (CLOPIDOGREL) [Concomitant]
  3. ASPIRIN (ACETYLSALICYLIC ACID) [Concomitant]
  4. HEPARIN (HEPARIN) [Concomitant]

REACTIONS (6)
  - Thrombocytopenia [None]
  - Dyspnoea [None]
  - Chest discomfort [None]
  - Haemoglobin decreased [None]
  - Subclavian artery stenosis [None]
  - Petechiae [None]
